FAERS Safety Report 21321613 (Version 1)
Quarter: 2022Q3

REPORT INFORMATION
  Report Type: Spontaneous
  Country: CA (occurrence: CA)
  Receive Date: 20220912
  Receipt Date: 20220912
  Transmission Date: 20221027
  Serious: Yes (Death, Other)
  Sender: FDA-Public Use
  Company Number: None

PATIENT

DRUGS (6)
  1. CARBOPLATIN [Suspect]
     Active Substance: CARBOPLATIN
     Indication: Triple negative breast cancer
     Route: 042
  2. DOXORUBICIN [Suspect]
     Active Substance: DOXORUBICIN
     Indication: Triple negative breast cancer
     Route: 065
  3. PACLITAXEL [Suspect]
     Active Substance: PACLITAXEL
     Indication: Triple negative breast cancer
     Route: 042
  4. CYCLOPHOSPHAMIDE [Suspect]
     Active Substance: CYCLOPHOSPHAMIDE
     Indication: Triple negative breast cancer
     Route: 065
  5. PEMBROLIZUMAB [Suspect]
     Active Substance: PEMBROLIZUMAB
     Indication: Triple negative breast cancer
     Route: 065
  6. EPIRUBICIN [Suspect]
     Active Substance: EPIRUBICIN
     Indication: Triple negative breast cancer
     Route: 042

REACTIONS (11)
  - Adrenocortical insufficiency acute [Fatal]
  - Encephalitis autoimmune [Fatal]
  - Hepatitis [Fatal]
  - Multiple organ dysfunction syndrome [Fatal]
  - Myocardial infarction [Fatal]
  - Pneumonia [Fatal]
  - Pneumonitis [Fatal]
  - Primary adrenal insufficiency [Fatal]
  - Pulmonary embolism [Fatal]
  - Secondary adrenocortical insufficiency [Fatal]
  - Sepsis [Fatal]
